FAERS Safety Report 4391700-0 (Version None)
Quarter: 2004Q3

REPORT INFORMATION
  Report Type: 
  Country: None (occurrence: None)
  Receive Date: 20040701
  Receipt Date: 20040623
  Transmission Date: 20050211
  Serious: Yes (Death)
  Sender: FDA-Public Use
  Company Number: 2003125358

PATIENT
  Age: 35 Year
  Sex: Female

DRUGS (3)
  1. GEODON [Suspect]
     Indication: BIPOLAR DISORDER
     Dates: start: 20030101
  2. BUPROPION HYDROCHLORIDE [Suspect]
     Indication: BIPOLAR DISORDER
  3. CLONAZEPAM [Suspect]
     Indication: ILL-DEFINED DISORDER

REACTIONS (1)
  - MULTIPLE DRUG OVERDOSE ACCIDENTAL [None]
